FAERS Safety Report 14123572 (Version 5)
Quarter: 2018Q2

REPORT INFORMATION
  Report Type: Spontaneous
  Country: FR (occurrence: FR)
  Receive Date: 20171025
  Receipt Date: 20180412
  Transmission Date: 20180711
  Serious: Yes (Hospitalization)
  Sender: FDA-Public Use
  Company Number: FR-JNJFOC-20171026013

PATIENT
  Age: 35 Year
  Sex: Male
  Weight: 105 kg

DRUGS (3)
  1. TREVICTA [Suspect]
     Active Substance: PALIPERIDONE PALMITATE
     Indication: SCHIZOPHRENIA
     Route: 030
     Dates: start: 20170518, end: 20170518
  2. TREVICTA [Suspect]
     Active Substance: PALIPERIDONE PALMITATE
     Indication: SCHIZOPHRENIA
     Route: 030
     Dates: start: 20171102
  3. TREVICTA [Suspect]
     Active Substance: PALIPERIDONE PALMITATE
     Indication: SCHIZOPHRENIA
     Route: 030
     Dates: start: 20170809, end: 20170809

REACTIONS (4)
  - Psychiatric decompensation [Recovering/Resolving]
  - Drug level decreased [Unknown]
  - Delusion [Unknown]
  - Delirium [Unknown]

NARRATIVE: CASE EVENT DATE: 201708
